FAERS Safety Report 15089387 (Version 1)
Quarter: 2018Q2

REPORT INFORMATION
  Report Type: Spontaneous
  Country: US (occurrence: US)
  Receive Date: 20180629
  Receipt Date: 20180629
  Transmission Date: 20180711
  Serious: No
  Sender: FDA-Public Use
  Company Number: US-TARO-2018TAR00384

PATIENT
  Age: 55 Year
  Sex: Female
  Weight: 97.51 kg

DRUGS (9)
  1. CYTOMEL [Concomitant]
     Active Substance: LIOTHYRONINE SODIUM
  2. VESICARE [Concomitant]
     Active Substance: SOLIFENACIN SUCCINATE
  3. FINACEA [Concomitant]
     Active Substance: AZELAIC ACID
  4. TURMERIC [Concomitant]
     Active Substance: HERBALS\TURMERIC
  5. METRONIDAZOLE GEL USP, 1% [Suspect]
     Active Substance: METRONIDAZOLE
     Indication: ROSACEA
     Dosage: A PINCH, 1X/DAY
     Route: 061
     Dates: start: 201804
  6. SYNTHROID [Concomitant]
     Active Substance: LEVOTHYROXINE SODIUM
  7. PROTONIX [Concomitant]
     Active Substance: PANTOPRAZOLE SODIUM
  8. MULTIVITAMIN [Concomitant]
     Active Substance: VITAMINS
  9. FISH OIL [Concomitant]
     Active Substance: FISH OIL

REACTIONS (4)
  - Acne [Not Recovered/Not Resolved]
  - Medication residue present [Not Recovered/Not Resolved]
  - Product substitution issue [Not Recovered/Not Resolved]
  - Product quality issue [Not Recovered/Not Resolved]

NARRATIVE: CASE EVENT DATE: 201804
